FAERS Safety Report 5162695-7 (Version None)
Quarter: 2006Q4

REPORT INFORMATION
  Report Type: 
  Country: None (occurrence: None)
  Receive Date: 20061201
  Receipt Date: 20060517
  Transmission Date: 20070319
  Serious: No
  Sender: FDA-Public Use
  Company Number: US-GLAXOSMITHKLINE-A0606887A

PATIENT
  Age: 1 Year
  Sex: Male

DRUGS (1)
  1. AMOXICILLIN + CLAVULANATE K [Suspect]
     Indication: EAR INFECTION
     Route: 048
     Dates: start: 20060516

REACTIONS (2)
  - DIARRHOEA [None]
  - RASH [None]
